FAERS Safety Report 10966146 (Version 1)
Quarter: 2015Q1

REPORT INFORMATION
  Report Type: Spontaneous
  Country: US (occurrence: US)
  Receive Date: 20150330
  Receipt Date: 20150330
  Transmission Date: 20150721
  Serious: No
  Sender: FDA-Public Use
  Company Number: US-MYLANLABS-2014S1003238

PATIENT
  Sex: Female
  Weight: 65.77 kg

DRUGS (3)
  1. HYDROCODONE [Concomitant]
     Active Substance: HYDROCODONE
     Dosage: 10 MG,UNK
     Route: 048
  2. FLECTOR /00372307/ [Concomitant]
     Dosage: UNK
     Route: 062
  3. FENTANYL TRANSDERMAL SYSTEM [Suspect]
     Active Substance: FENTANYL
     Indication: BACK PAIN
     Dosage: 50 ?G,QH
     Route: 062

REACTIONS (1)
  - Application site laceration [Recovered/Resolved]
